FAERS Safety Report 6928423-7 (Version None)
Quarter: 2010Q3

REPORT INFORMATION
  Report Type: 
  Country: None (occurrence: None)
  Receive Date: 20100817
  Receipt Date: 20100805
  Transmission Date: 20110219
  Serious: Yes (Other)
  Sender: FDA-Public Use
  Company Number: CN-PFIZER INC-2010098276

PATIENT
  Age: 71 Year
  Sex: Male

DRUGS (2)
  1. VORICONAZOLE [Suspect]
     Indication: BRONCHOPULMONARY ASPERGILLOSIS
     Dosage: 300 MG, 2X/DAY
     Route: 042
  2. VORICONAZOLE [Suspect]
     Dosage: 200 MG, 2X/DAY
     Route: 042

REACTIONS (2)
  - RENAL FAILURE ACUTE [None]
  - RESPIRATORY FAILURE [None]
